FAERS Safety Report 9238176 (Version 2)
Quarter: 2013Q2

REPORT INFORMATION
  Report Type: Report from Study
  Country: CZ (occurrence: CZ)
  Receive Date: 20130418
  Receipt Date: 20130423
  Transmission Date: 20140414
  Serious: Yes (Death, Other)
  Sender: FDA-Public Use
  Company Number: PHHY2013CZ037392

PATIENT
  Sex: Male

DRUGS (1)
  1. ZOLEDRONATE [Suspect]
     Indication: METASTASES TO BONE
     Dosage: UNK
     Dates: start: 20080104, end: 20120920

REACTIONS (6)
  - Breast cancer [Fatal]
  - Metastasis [Fatal]
  - Malignant neoplasm progression [Fatal]
  - Embolism [Unknown]
  - Osteonecrosis of jaw [Unknown]
  - Tooth loss [Unknown]
